FAERS Safety Report 20305482 (Version 1)
Quarter: 2022Q1

REPORT INFORMATION
  Report Type: Spontaneous
  Country: US (occurrence: US)
  Receive Date: 20220106
  Receipt Date: 20220106
  Transmission Date: 20220423
  Serious: Yes (Hospitalization)
  Sender: FDA-Public Use
  Company Number: US-AMNEAL PHARMACEUTICALS-2021-AMRX-00784

PATIENT
  Age: 47 Year
  Sex: Female
  Weight: 83 kg

DRUGS (4)
  1. ACTIVELLA [Suspect]
     Active Substance: ESTRADIOL\NORETHINDRONE ACETATE
     Indication: Uterine leiomyoma
     Dosage: UNK
     Route: 048
     Dates: start: 20190410, end: 20191217
  2. ELAGOLIX [Suspect]
     Active Substance: ELAGOLIX
     Indication: Uterine leiomyoma
     Dosage: UNK
     Route: 048
     Dates: start: 20190410, end: 20191217
  3. VITAMIN D3 [Concomitant]
     Active Substance: CHOLECALCIFEROL
     Indication: Supplementation therapy
     Dosage: 2000 INTERNATIONAL UNIT, QD
     Route: 048
     Dates: start: 20190512
  4. IRON [Concomitant]
     Active Substance: IRON
     Indication: Anaemia
     Dosage: 325 MILLIGRAM, QD
     Route: 048
     Dates: start: 20190512

REACTIONS (1)
  - Uterine leiomyoma [Recovered/Resolved]

NARRATIVE: CASE EVENT DATE: 20200302
